FAERS Safety Report 20185999 (Version 1)
Quarter: 2021Q4

REPORT INFORMATION
  Report Type: Spontaneous
  Country: FI (occurrence: FI)
  Receive Date: 20211215
  Receipt Date: 20211215
  Transmission Date: 20220303
  Serious: Yes (Hospitalization, Other)
  Sender: FDA-Public Use
  Company Number: FI-MYLANLABS-2021M1085802

PATIENT
  Age: 59 Year
  Sex: Female

DRUGS (18)
  1. OLANZAPINE [Suspect]
     Active Substance: OLANZAPINE
     Indication: Schizoaffective disorder
     Dosage: 30 MILLIGRAM, ONCE A DAY
     Route: 065
  2. OLANZAPINE [Suspect]
     Active Substance: OLANZAPINE
     Dosage: UNK UNK, ONCE A DAY (1 + 2 TABLETS DAILY)
     Route: 065
     Dates: start: 2010, end: 20211018
  3. OLANZAPINE [Suspect]
     Active Substance: OLANZAPINE
     Dosage: UNK UNK, ONCE A DAY  (1 + 1 TABLETS)
     Route: 065
     Dates: start: 20211019, end: 20211026
  4. OLANZAPINE [Suspect]
     Active Substance: OLANZAPINE
     Dosage: UNK UNK, ONCE A DAY  (1 TABLET, EVERY EVENING DAILY)
     Route: 065
     Dates: start: 20211027, end: 20211028
  5. ARIPIPRAZOLE [Suspect]
     Active Substance: ARIPIPRAZOLE
     Indication: Schizoaffective disorder
     Dosage: UNK
     Route: 065
     Dates: start: 202111
  6. QUETIAPINE FUMARATE [Suspect]
     Active Substance: QUETIAPINE FUMARATE
     Indication: Schizoaffective disorder
     Dosage: UNK
     Route: 065
     Dates: start: 202111
  7. CLOZAPINE [Suspect]
     Active Substance: CLOZAPINE
     Indication: Schizoaffective disorder
     Dosage: UNK
     Route: 065
     Dates: start: 1998, end: 1998
  8. CLOZAPINE [Suspect]
     Active Substance: CLOZAPINE
     Dosage: 200 MILLIGRAM, ONCE A DAY
     Route: 065
     Dates: start: 2021, end: 202111
  9. CLOZAPINE [Suspect]
     Active Substance: CLOZAPINE
     Dosage: UNK
     Route: 065
     Dates: start: 202110, end: 2021
  10. CLOZAPINE [Suspect]
     Active Substance: CLOZAPINE
     Dosage: 25 MILLIGRAM, ONCE A DAY (EVERY EVENING, TITRATED UP TO 200 MG)
     Route: 048
     Dates: start: 20211018, end: 20211103
  11. CLOZAPINE [Suspect]
     Active Substance: CLOZAPINE
     Dosage: 200 MILLIGRAM, ONCE A DAY
     Route: 048
     Dates: start: 20211103, end: 20211112
  12. LITHIUM CARBONATE [Suspect]
     Active Substance: LITHIUM CARBONATE
     Indication: Schizoaffective disorder
     Dosage: UNK
     Route: 065
  13. LITHIUM CARBONATE [Suspect]
     Active Substance: LITHIUM CARBONATE
     Dosage: UNK UNK, ONCE A DAY (1 + 2 DOSES)
     Route: 065
     Dates: start: 2011, end: 20211109
  14. LITHIUM CARBONATE [Suspect]
     Active Substance: LITHIUM CARBONATE
     Dosage: UNK UNK, ONCE A DAY (1 + 1.5 DOSES)
     Route: 065
     Dates: start: 20211110
  15. ZUCLOPENTHIXOL [Concomitant]
     Active Substance: ZUCLOPENTHIXOL
     Indication: Insomnia
     Dosage: UNK
     Route: 065
     Dates: start: 20211007, end: 20211026
  16. TENOXICAM [Concomitant]
     Active Substance: TENOXICAM
     Indication: Product used for unknown indication
     Dosage: UNK (0.5 ? 1 DOSES, ONCE A DAY WHEN NEEDED)
     Route: 065
     Dates: start: 20210924, end: 20210927
  17. TENOXICAM [Concomitant]
     Active Substance: TENOXICAM
     Dosage: UNK (0.5 ? 2 DOSES, ONCE A DAY WHEN NEEDED)
     Route: 065
     Dates: start: 20210928
  18. METFORMIN HYDROCHLORIDE [Concomitant]
     Active Substance: METFORMIN HYDROCHLORIDE
     Indication: Product used for unknown indication
     Dosage: 500 MILLIGRAM, ONCE A DAY
     Route: 065
     Dates: start: 2019

REACTIONS (5)
  - Delusion [Not Recovered/Not Resolved]
  - White blood cell count increased [Unknown]
  - Eosinophilia [Unknown]
  - Insomnia [Not Recovered/Not Resolved]
  - Off label use [Unknown]

NARRATIVE: CASE EVENT DATE: 19980101
